FAERS Safety Report 9506471 (Version 1)
Quarter: 2013Q1

REPORT INFORMATION
  Report Type: Spontaneous
  Country: US (occurrence: None)
  Receive Date: 20130305
  Receipt Date: 20130305
  Transmission Date: 20140127
  Serious: Yes (Hospitalization, Disabling, Other)
  Sender: FDA-Public Use
  Company Number: 163-21880-12030391

PATIENT
  Age: 47 Year
  Sex: Male

DRUGS (16)
  1. REVLIMID [Suspect]
     Dosage: DAYS 1-14 OF A 21-DAY
     Dates: start: 20120202
  2. METHADONE [Concomitant]
  3. DILAUDID [Concomitant]
  4. DECADRON [Concomitant]
  5. VELCADE [Concomitant]
  6. CALCIUM AND VITAMIN D3 [Concomitant]
  7. LOVENOX [Concomitant]
  8. PROTONIX [Concomitant]
  9. MILK OF MAGNESIA [Concomitant]
  10. TYLENOL [Concomitant]
  11. VITAMIN C [Concomitant]
  12. PERCOCET [Concomitant]
  13. OMPRAZOLE [Concomitant]
  14. FLORANEX [Concomitant]
  15. FLEET ENEMA [Concomitant]
  16. MULTIVITAMINS [Concomitant]

REACTIONS (5)
  - Pneumonia [None]
  - Deep vein thrombosis [None]
  - Bronchitis [None]
  - Candida infection [None]
  - Hypocalcaemia [None]
